FAERS Safety Report 24424467 (Version 1)
Quarter: 2024Q4

REPORT INFORMATION
  Report Type: Spontaneous
  Country: FR (occurrence: FR)
  Receive Date: 20241010
  Receipt Date: 20241010
  Transmission Date: 20250114
  Serious: Yes (Hospitalization)
  Sender: TEVA
  Company Number: None

PATIENT
  Age: 37 Year
  Sex: Female
  Weight: 55 kg

DRUGS (5)
  1. TRAMADOL [Suspect]
     Active Substance: TRAMADOL
     Indication: Migraine
     Dosage: TIME INTERVAL: TOTAL: TRAMADOL HYDROCHLORIDE
     Route: 048
     Dates: start: 20240318, end: 20240318
  2. ACUPAN [Suspect]
     Active Substance: NEFOPAM HYDROCHLORIDE
     Indication: Migraine
     Dosage: TIME INTERVAL: TOTAL
     Route: 042
     Dates: start: 20240318, end: 20240318
  3. ASPIRIN DL-LYSINE [Suspect]
     Active Substance: ASPIRIN DL-LYSINE
     Indication: Migraine
     Dosage: TIME INTERVAL: TOTAL
     Route: 048
     Dates: start: 20240318, end: 20240318
  4. PRIMPERAN [Suspect]
     Active Substance: METOCLOPRAMIDE HYDROCHLORIDE
     Indication: Vomiting
     Dosage: TIME INTERVAL: TOTAL: 10 MG/2 ML, SOLUTION FOR INJECTION IN AMPOULE
     Route: 042
     Dates: start: 20240318, end: 20240318
  5. PREDNISOLONE SODIUM METAZOATE [Suspect]
     Active Substance: PREDNISOLONE SODIUM METAZOATE
     Indication: Migraine
     Dosage: TIME INTERVAL: TOTAL: SOLUPRED I.V., LYOPHILIZER AND SOLUTION FOR INJECTABLE PREPARATION
     Route: 042
     Dates: start: 20240318, end: 20240318

REACTIONS (4)
  - Status epilepticus [Recovering/Resolving]
  - Epilepsy [Recovered/Resolved]
  - Hyponatraemia [Recovered/Resolved]
  - Brain oedema [Recovered/Resolved]

NARRATIVE: CASE EVENT DATE: 20240320
